FAERS Safety Report 23623279 (Version 3)
Quarter: 2024Q2

REPORT INFORMATION
  Report Type: Spontaneous
  Country: MX (occurrence: None)
  Receive Date: 20240312
  Receipt Date: 20240606
  Transmission Date: 20240716
  Serious: Yes (Other)
  Sender: FDA-Public Use
  Company Number: 2024A058542

PATIENT
  Age: 25 Year
  Sex: Female
  Weight: 77.1 kg

DRUGS (1)
  1. KOSELUGO [Suspect]
     Active Substance: SELUMETINIB
     Indication: Glioblastoma
     Route: 048
     Dates: start: 20231101

REACTIONS (4)
  - Brain radiation necrosis [Unknown]
  - Skin laceration [Unknown]
  - Affective disorder [Recovering/Resolving]
  - Off label use [Unknown]

NARRATIVE: CASE EVENT DATE: 20231101
